FAERS Safety Report 10945524 (Version 1)
Quarter: 2015Q1

REPORT INFORMATION
  Report Type: Spontaneous
  Country: FR (occurrence: None)
  Receive Date: 20150319
  Receipt Date: 20150319
  Transmission Date: 20150721
  Serious: Yes (Hospitalization)
  Sender: FDA-Public Use
  Company Number: 2784102

PATIENT
  Age: 6 Year
  Sex: Male

DRUGS (5)
  1. VINCRISTINE SULFATE. [Suspect]
     Active Substance: VINCRISTINE SULFATE
     Indication: CHEMOTHERAPY
     Route: 042
     Dates: start: 20141212, end: 20141212
  2. IFOSFAMIDE. [Suspect]
     Active Substance: IFOSFAMIDE
     Indication: CHEMOTHERAPY
     Route: 042
     Dates: start: 20141212, end: 20141213
  3. BIONOLYTE [Concomitant]
     Active Substance: UNSPECIFIED INGREDIENT
  4. ACTINOMYCIN D [Suspect]
     Active Substance: DACTINOMYCIN
     Indication: CHEMOTHERAPY
     Route: 042
     Dates: start: 20141212, end: 20141212
  5. UROMITEXAN [Concomitant]
     Active Substance: MESNA

REACTIONS (1)
  - Febrile bone marrow aplasia [None]

NARRATIVE: CASE EVENT DATE: 20141222
